FAERS Safety Report 9500296 (Version 1)
Quarter: 2013Q1

REPORT INFORMATION
  Report Type: Spontaneous
  Country: US (occurrence: None)
  Receive Date: 20130107
  Receipt Date: 20130107
  Transmission Date: 20140127
  Serious: No
  Sender: FDA-Public Use
  Company Number: PHEH2012US021018

PATIENT
  Age: 49 Year
  Sex: Female

DRUGS (1)
  1. GILENYA (FINGOLIMOD) [Suspect]
     Indication: MULTIPLE SCLEROSIS
     Route: 048
     Dates: start: 20121001

REACTIONS (11)
  - Speech disorder [None]
  - Abdominal distension [None]
  - Fluid retention [None]
  - Musculoskeletal stiffness [None]
  - Arthralgia [None]
  - Rash [None]
  - Influenza [None]
  - Pyrexia [None]
  - Diarrhoea [None]
  - Nasopharyngitis [None]
  - Migraine [None]
